FAERS Safety Report 4603327-3 (Version None)
Quarter: 2005Q1

REPORT INFORMATION
  Report Type: 
  Country: None (occurrence: None)
  Receive Date: 20050307
  Receipt Date: 20050221
  Transmission Date: 20050727
  Serious: Yes (Other)
  Sender: FDA-Public Use
  Company Number: 2005038387

PATIENT

DRUGS (3)
  1. ZARONTIN [Suspect]
     Indication: EPILEPSY
     Dosage: ORAL
     Route: 048
  2. VALPROATE SODIUM [Suspect]
     Indication: EPILEPSY
     Dosage: ORAL
     Route: 048
  3. FOLIC ACID [Concomitant]

REACTIONS (7)
  - CAESAREAN SECTION [None]
  - DRUG EXPOSURE DURING PREGNANCY [None]
  - MULTIPLE CONGENITAL ABNORMALITIES [None]
  - PLATELET COUNT DECREASED [None]
  - PRE-ECLAMPSIA [None]
  - PREMATURE BABY [None]
  - RUBELLA ANTIBODY POSITIVE [None]
